FAERS Safety Report 18607147 (Version 2)
Quarter: 2020Q4

REPORT INFORMATION
  Report Type: Spontaneous
  Country: PL (occurrence: PL)
  Receive Date: 20201211
  Receipt Date: 20201226
  Transmission Date: 20210114
  Serious: Yes (Life-Threatening, Hospitalization, Other)
  Sender: FDA-Public Use
  Company Number: PL-GLAXOSMITHKLINE-PL2020GSK235934

PATIENT
  Age: 35 Year
  Sex: Male

DRUGS (4)
  1. LAMOTRIGINE. [Suspect]
     Active Substance: LAMOTRIGINE
     Indication: BIPOLAR DISORDER
     Dosage: UNK
     Dates: start: 201804
  2. NAPROXEN. [Interacting]
     Active Substance: NAPROXEN
     Indication: MYALGIA
     Dosage: UNK
     Dates: start: 201806
  3. AUGMENTIN [Interacting]
     Active Substance: AMOXICILLIN\CLAVULANATE POTASSIUM
     Indication: UPPER RESPIRATORY TRACT INFECTION
     Dosage: UNK
     Dates: start: 201806
  4. SERONIL [Concomitant]
     Active Substance: FLUOXETINE HYDROCHLORIDE
     Indication: BIPOLAR DISORDER
     Dosage: UNK

REACTIONS (14)
  - Stevens-Johnson syndrome [Recovered/Resolved]
  - Oral mucosa erosion [Recovered/Resolved]
  - Drug interaction [Unknown]
  - Toxic epidermal necrolysis [Recovered/Resolved]
  - Dyspnoea [Unknown]
  - Conjunctival haemorrhage [Unknown]
  - Skin lesion [Recovered/Resolved]
  - Acute respiratory failure [Unknown]
  - Wound [Recovered/Resolved]
  - Blister [Recovered/Resolved]
  - Skin exfoliation [Recovered/Resolved]
  - Pruritus [Recovered/Resolved]
  - Lip erosion [Recovered/Resolved]
  - Purulent discharge [Unknown]

NARRATIVE: CASE EVENT DATE: 20180626
